FAERS Safety Report 7964462-5 (Version None)
Quarter: 2011Q4

REPORT INFORMATION
  Report Type: 
  Country: None (occurrence: None)
  Receive Date: 20111206
  Receipt Date: 20111123
  Transmission Date: 20120403
  Serious: Yes (Hospitalization, Other)
  Sender: FDA-Public Use
  Company Number: 2011MA016792

PATIENT
  Age: 29 Year
  Sex: Female

DRUGS (1)
  1. METHYLPHENIDATE HYDROCHLORIDE [Suspect]
     Indication: INTENTIONAL OVERDOSE
     Dosage: 80 MG;1X;INH
     Route: 055

REACTIONS (3)
  - TOXICITY TO VARIOUS AGENTS [None]
  - ANXIETY [None]
  - INTENTIONAL OVERDOSE [None]
